FAERS Safety Report 20082882 (Version 4)
Quarter: 2022Q1

REPORT INFORMATION
  Report Type: Spontaneous
  Country: AR (occurrence: AR)
  Receive Date: 20211117
  Receipt Date: 20220224
  Transmission Date: 20220423
  Serious: Yes (Hospitalization, Other)
  Sender: FDA-Public Use
  Company Number: AR-PFIZER INC-202101546809

PATIENT
  Age: 50 Year
  Sex: Female

DRUGS (2)
  1. IBRANCE [Suspect]
     Active Substance: PALBOCICLIB
     Indication: Breast cancer metastatic
     Dosage: 125 MG, CYCLIC (DAILY, SCHEME 3X1)
     Dates: start: 20190809
  2. LETROZOLE [Concomitant]
     Active Substance: LETROZOLE
     Dosage: UNK

REACTIONS (16)
  - Pulmonary embolism [Unknown]
  - Neutropenia [Unknown]
  - Urinary tract infection [Not Recovered/Not Resolved]
  - Cerebrovascular accident [Unknown]
  - Malnutrition [Unknown]
  - Vomiting [Unknown]
  - Neoplasm progression [Unknown]
  - Dysarthria [Not Recovered/Not Resolved]
  - Dyspnoea [Not Recovered/Not Resolved]
  - Insomnia [Not Recovered/Not Resolved]
  - Glossodynia [Unknown]
  - Weight decreased [Unknown]
  - Tooth discolouration [Unknown]
  - Anaemia [Unknown]
  - Tooth fracture [Unknown]
  - Cardiovascular disorder [Unknown]

NARRATIVE: CASE EVENT DATE: 20210101
